FAERS Safety Report 8198671-X (Version None)
Quarter: 2012Q1

REPORT INFORMATION
  Report Type: 
  Country: None (occurrence: None)
  Receive Date: 20120309
  Receipt Date: 20120131
  Transmission Date: 20120608
  Serious: No
  Sender: FDA-Public Use
  Company Number: US-AMGEN-USASP2012006443

PATIENT
  Age: 74 Year
  Sex: Female

DRUGS (9)
  1. EXEMESTANE [Concomitant]
  2. PROLIA [Suspect]
     Indication: OSTEOPOROSIS POSTMENOPAUSAL
     Dosage: 60 MG, Q6MO
     Route: 058
     Dates: start: 20110801
  3. JANUVIA [Concomitant]
     Dosage: UNK
  4. ATORVASTATIN [Concomitant]
     Dosage: UNK
  5. AZATHIOPRINE [Concomitant]
     Dosage: UNK
  6. METFORMIN HCL [Concomitant]
     Dosage: UNK
  7. EXEMESTANE [Concomitant]
     Dosage: UNK
  8. LISINOPRIL [Concomitant]
     Dosage: UNK
  9. PREDNISONE [Concomitant]
     Dosage: UNK

REACTIONS (3)
  - VITAMIN D INCREASED [None]
  - SENSATION OF FOREIGN BODY [None]
  - JOINT CREPITATION [None]
